FAERS Safety Report 4514833-4 (Version None)
Quarter: 2004Q4

REPORT INFORMATION
  Report Type: 
  Country: None (occurrence: None)
  Receive Date: 20041126
  Receipt Date: 20041118
  Transmission Date: 20050328
  Serious: Yes (Life-Threatening, Hospitalization)
  Sender: FDA-Public Use
  Company Number: 2004CG02354

PATIENT
  Age: 53 Year
  Sex: Male

DRUGS (4)
  1. IRESSA [Suspect]
     Indication: LUNG NEOPLASM MALIGNANT
     Dosage: 1 MG QD PO
     Route: 048
     Dates: start: 20041022, end: 20041110
  2. IRESSA [Suspect]
     Indication: LUNG NEOPLASM MALIGNANT
     Dosage: 1 MG QD PO
     Route: 048
     Dates: start: 20041113
  3. CARBOPLATIN [Concomitant]
  4. GEMZAR [Concomitant]

REACTIONS (3)
  - ACUTE RESPIRATORY DISTRESS SYNDROME [None]
  - DIABETES INSIPIDUS [None]
  - INTERSTITIAL LUNG DISEASE [None]
